FAERS Safety Report 6967580-3 (Version None)
Quarter: 2010Q3

REPORT INFORMATION
  Report Type: 
  Country: None (occurrence: None)
  Receive Date: 20100907
  Receipt Date: 20100831
  Transmission Date: 20110219
  Serious: Yes (Disabling)
  Sender: FDA-Public Use
  Company Number: CH-PFIZER INC-2010109279

PATIENT
  Age: 64 Year
  Sex: Male

DRUGS (3)
  1. TAHOR [Suspect]
     Indication: DYSLIPIDAEMIA
     Dosage: 20 MG, 1X/DAY
     Route: 048
     Dates: start: 20081101, end: 20100301
  2. METFORMIN HYDROCHLORIDE [Concomitant]
     Dosage: 850 MG, 3X/DAY
     Route: 048
  3. LEXOMIL [Concomitant]
     Dosage: UNK
     Route: 048

REACTIONS (3)
  - DYSPNOEA [None]
  - MUSCULAR WEAKNESS [None]
  - RHABDOMYOLYSIS [None]
